FAERS Safety Report 8220553-5 (Version None)
Quarter: 2012Q1

REPORT INFORMATION
  Report Type: 
  Country: None (occurrence: None)
  Receive Date: 20120320
  Receipt Date: 20120315
  Transmission Date: 20120608
  Serious: Yes (Hospitalization, Other)
  Sender: FDA-Public Use
  Company Number: US-BAYER-2011-121578

PATIENT
  Age: 53 Year
  Sex: Female

DRUGS (1)
  1. BETASERON [Suspect]
     Indication: MULTIPLE SCLEROSIS
     Dosage: 1 ML, QOD
     Route: 058
     Dates: start: 20101026, end: 20111118

REACTIONS (5)
  - INJECTION SITE SWELLING [None]
  - INJECTION SITE IRRITATION [None]
  - INJECTION SITE INFECTION [None]
  - PYREXIA [None]
  - INJECTION SITE ERYTHEMA [None]
